FAERS Safety Report 8788975 (Version 2)
Quarter: 2013Q4

REPORT INFORMATION
  Report Type: Spontaneous
  Country: US (occurrence: US)
  Receive Date: 20120915
  Receipt Date: 20131031
  Transmission Date: 20140711
  Serious: Yes (Hospitalization, Other)
  Sender: FDA-Public Use
  Company Number: US-009507513-1209USA004823

PATIENT
  Sex: Female

DRUGS (3)
  1. VICTRELIS [Suspect]
     Indication: HEPATITIS C
     Dosage: UNK
     Dates: start: 20120420
  2. REBETOL [Suspect]
     Indication: HEPATITIS C
     Dosage: UNK
     Dates: start: 20120324
  3. PEGASYS [Suspect]
     Indication: HEPATITIS C
     Dosage: UNK
     Dates: start: 20120324

REACTIONS (13)
  - Blood pressure inadequately controlled [Unknown]
  - Diabetes mellitus management [Unknown]
  - Depression [Unknown]
  - Localised infection [Unknown]
  - Amnesia [Unknown]
  - Confusional state [Unknown]
  - Hyperhidrosis [Unknown]
  - Weight decreased [Unknown]
  - Diarrhoea [Unknown]
  - Vomiting [Unknown]
  - Fatigue [Unknown]
  - Platelet count decreased [Unknown]
  - Dysgeusia [Unknown]
